FAERS Safety Report 5095401-5 (Version None)
Quarter: 2006Q3

REPORT INFORMATION
  Report Type: 
  Country: None (occurrence: None)
  Receive Date: 20060901
  Receipt Date: 20060823
  Transmission Date: 20061208
  Serious: Yes (Hospitalization)
  Sender: FDA-Public Use
  Company Number: JP-BRISTOL-MYERS SQUIBB COMPANY-13493747

PATIENT
  Age: 78 Year
  Sex: Male

DRUGS (4)
  1. ENDOXAN [Suspect]
     Indication: PLASMACYTOMA
     Route: 042
     Dates: start: 20031027
  2. PREDONINE [Suspect]
     Indication: PLASMACYTOMA
     Route: 042
     Dates: start: 20031027
  3. ADRIAMYCIN PFS [Concomitant]
     Dates: start: 20031027
  4. ONCOVIN [Concomitant]
     Dates: start: 20031027

REACTIONS (1)
  - HERPES ZOSTER [None]
